FAERS Safety Report 12976054 (Version 1)
Quarter: 2016Q4

REPORT INFORMATION
  Report Type: Spontaneous
  Country: DE (occurrence: DE)
  Receive Date: 20161126
  Receipt Date: 20161126
  Transmission Date: 20170207
  Serious: Yes (Other)
  Sender: FDA-Public Use
  Company Number: GXKR2016DE005175

PATIENT

DRUGS (1)
  1. ACETYLSALICYLIC ACID [Suspect]
     Active Substance: ASPIRIN
     Indication: PROPHYLAXIS
     Dosage: 50 MG/DAY
     Route: 065

REACTIONS (4)
  - Angina pectoris [Unknown]
  - Chest discomfort [Unknown]
  - Palpitations [Unknown]
  - Hypoventilation [Unknown]
